FAERS Safety Report 16443970 (Version 2)
Quarter: 2019Q2

REPORT INFORMATION
  Report Type: Report from Study
  Country: DE (occurrence: DE)
  Receive Date: 20190618
  Receipt Date: 20190621
  Transmission Date: 20190711
  Serious: Yes (Hospitalization)
  Sender: FDA-Public Use
  Company Number: DE-IPSEN BIOPHARMACEUTICALS, INC.-2019-10003

PATIENT
  Age: 63 Year
  Sex: Male

DRUGS (1)
  1. SOMATULINE AUTOGEL 60MG [Suspect]
     Active Substance: LANREOTIDE ACETATE
     Indication: GASTROENTEROPANCREATIC NEUROENDOCRINE TUMOUR DISEASE
     Route: 058

REACTIONS (3)
  - Diarrhoea [Recovering/Resolving]
  - Arthritis [Recovering/Resolving]
  - Faeces pale [Recovering/Resolving]

NARRATIVE: CASE EVENT DATE: 20190516
